FAERS Safety Report 24765574 (Version 1)
Quarter: 2024Q4

REPORT INFORMATION
  Report Type: Spontaneous
  Country: US (occurrence: None)
  Receive Date: 20241221
  Receipt Date: 20241221
  Transmission Date: 20250114
  Serious: Yes (Hospitalization)
  Sender: Public
  Company Number: None

PATIENT
  Sex: Male
  Weight: 66.5 kg

DRUGS (3)
  1. CARBOPLATIN [Suspect]
     Active Substance: CARBOPLATIN
  2. ETOPOSIDE [Suspect]
     Active Substance: ETOPOSIDE
     Dosage: OTHER QUANTITY : 2300.4MG;?
  3. IFOSFAMIDE [Suspect]
     Active Substance: IFOSFAMIDE
     Dosage: OTHER QUANTITY : 11416.8MG ;?

REACTIONS (2)
  - Pyrexia [None]
  - Thrombocytopenia [None]

NARRATIVE: CASE EVENT DATE: 20190919
